FAERS Safety Report 17319804 (Version 14)
Quarter: 2022Q2

REPORT INFORMATION
  Report Type: Spontaneous
  Country: FR (occurrence: FR)
  Receive Date: 20200125
  Receipt Date: 20220622
  Transmission Date: 20220721
  Serious: Yes (Hospitalization, Other)
  Sender: FDA-Public Use
  Company Number: FR-JNJFOC-20200135094

PATIENT
  Age: 65 Year
  Sex: Male
  Weight: 89 kg

DRUGS (11)
  1. VELCADE [Suspect]
     Active Substance: BORTEZOMIB
     Indication: Plasma cell myeloma
     Dosage: 2.7 MILLIGRAM
     Route: 058
     Dates: start: 20191025, end: 20191230
  2. DEXAMETHASONE [Suspect]
     Active Substance: DEXAMETHASONE
     Indication: Plasma cell myeloma
     Dosage: 20 MILLIGRAM
     Route: 048
     Dates: start: 20191025, end: 20191230
  3. DEXAMETHASONE [Suspect]
     Active Substance: DEXAMETHASONE
     Dosage: 20 MILLIGRAM
     Route: 042
     Dates: start: 20191025, end: 20191216
  4. DARATUMUMAB [Suspect]
     Active Substance: DARATUMUMAB
     Indication: Plasma cell myeloma
     Dosage: 1800 MILLIGRAM
     Route: 058
     Dates: start: 20191025
  5. LENALIDOMIDE [Suspect]
     Active Substance: LENALIDOMIDE
     Indication: Plasma cell myeloma
     Dosage: 25 MILLIGRAM
     Route: 048
     Dates: start: 20191025, end: 20191230
  6. SKENAN [Concomitant]
     Active Substance: MORPHINE SULFATE
     Indication: Back pain
     Dosage: 10 MILLIGRAM, BID
     Route: 048
     Dates: start: 20190928
  7. SKENAN [Concomitant]
     Active Substance: MORPHINE SULFATE
     Dosage: 50 NANOGRAM, BID
     Route: 048
     Dates: start: 201909
  8. MORPHINE SULFATE [Concomitant]
     Active Substance: MORPHINE SULFATE
     Indication: Back pain
     Dosage: 20 MILLIGRAM, QID
     Route: 048
     Dates: start: 20190928
  9. MORPHINE SULFATE [Concomitant]
     Active Substance: MORPHINE SULFATE
     Dosage: 5 NANOGRAM, Q4HR
     Route: 048
     Dates: start: 201909
  10. ACUPAN [Concomitant]
     Active Substance: NEFOPAM HYDROCHLORIDE
     Indication: Back pain
     Dosage: 20 NANOGRAM, Q6HR
     Route: 048
     Dates: start: 201909
  11. ACUPAN [Concomitant]
     Active Substance: NEFOPAM HYDROCHLORIDE
     Indication: Back pain

REACTIONS (1)
  - Mucormycosis [Recovered/Resolved]

NARRATIVE: CASE EVENT DATE: 20191217
